FAERS Safety Report 8542582-4 (Version None)
Quarter: 2012Q3

REPORT INFORMATION
  Report Type: 
  Country: None (occurrence: None)
  Receive Date: 20120726
  Receipt Date: 20120711
  Transmission Date: 20120928
  Serious: No
  Sender: FDA-Public Use
  Company Number: US-009507513-1207USA002771

PATIENT

DRUGS (5)
  1. RIBAVIRIN [Suspect]
  2. PEGASYS [Suspect]
  3. VICTRELIS [Suspect]
     Dosage: 800 MG, TID
     Route: 048
     Dates: start: 20120601
  4. VALACYCLOVIR HYDROCHLORIDE [Concomitant]
  5. ENJUVIA [Concomitant]

REACTIONS (2)
  - FATIGUE [None]
  - POOR QUALITY SLEEP [None]
